FAERS Safety Report 5376390-2 (Version None)
Quarter: 2007Q3

REPORT INFORMATION
  Report Type: 
  Country: None (occurrence: None)
  Receive Date: 20070702
  Receipt Date: 20070620
  Transmission Date: 20080115
  Serious: Yes (Hospitalization, Other)
  Sender: FDA-Public Use
  Company Number: US-ELI_LILLY_AND_COMPANY-US200602001657

PATIENT
  Age: 53 Year
  Sex: Male
  Weight: 180 kg

DRUGS (5)
  1. HYDROCHLOROTHIAZIDE [Concomitant]
     Dosage: 25 MG, EACH MORNING
     Route: 048
     Dates: start: 20031105
  2. ZYPREXA [Suspect]
     Indication: DEPRESSION
     Route: 048
     Dates: start: 19990101
  3. ZYPREXA [Suspect]
     Dosage: 10 MG, EACH EVENING
     Route: 048
     Dates: start: 20001220, end: 20020619
  4. ZYPREXA [Suspect]
     Dosage: 10 MG, 2/D
     Route: 048
     Dates: start: 20020620
  5. DEPAKOTE [Concomitant]
     Dosage: 200 MG, 3/D
     Dates: start: 20010305

REACTIONS (25)
  - AORTIC DISORDER [None]
  - BUNDLE BRANCH BLOCK [None]
  - CARDIOMEGALY [None]
  - CHEST PAIN [None]
  - DIABETIC KETOACIDOSIS [None]
  - DIZZINESS [None]
  - DYSPNOEA [None]
  - FATIGUE [None]
  - HAEMOGLOBIN DECREASED [None]
  - HYPONATRAEMIA [None]
  - LOSS OF CONSCIOUSNESS [None]
  - MEAN PLATELET VOLUME INCREASED [None]
  - METABOLIC DISORDER [None]
  - OBESITY [None]
  - OEDEMA [None]
  - PAIN IN EXTREMITY [None]
  - PLATELET COUNT DECREASED [None]
  - REFUSAL OF TREATMENT BY PATIENT [None]
  - ROAD TRAFFIC ACCIDENT [None]
  - SUPRAVENTRICULAR EXTRASYSTOLES [None]
  - TYPE 2 DIABETES MELLITUS [None]
  - VENTRICULAR EXTRASYSTOLES [None]
  - VENTRICULAR HYPERTROPHY [None]
  - WEIGHT INCREASED [None]
  - WHITE BLOOD CELL COUNT DECREASED [None]
